FAERS Safety Report 15907409 (Version 1)
Quarter: 2019Q1

REPORT INFORMATION
  Report Type: Spontaneous
  Country: RO (occurrence: RO)
  Receive Date: 20190204
  Receipt Date: 20190204
  Transmission Date: 20190417
  Serious: Yes (Hospitalization, Other)
  Sender: FDA-Public Use
  Company Number: RO-PFIZER INC-2018427984

PATIENT
  Age: 71 Year
  Sex: Male
  Weight: 87 kg

DRUGS (1)
  1. SUTENT [Suspect]
     Active Substance: SUNITINIB MALATE
     Indication: METASTATIC RENAL CELL CARCINOMA
     Dosage: 50 MG, CYCLIC (28 DAYS OF TREATMENT AND 14 DAYS OF PAUSE, 1X/DAY IN THE MORNING, AFTER THE MEAL)
     Route: 048
     Dates: start: 201410, end: 20180710

REACTIONS (2)
  - Labile hypertension [Recovered/Resolved]
  - Secondary hypothyroidism [Recovered/Resolved]
